FAERS Safety Report 8387542-1 (Version None)
Quarter: 2012Q2

REPORT INFORMATION
  Report Type: 
  Country: None (occurrence: None)
  Receive Date: 20120525
  Receipt Date: 20120522
  Transmission Date: 20120825
  Serious: Yes (Hospitalization)
  Sender: FDA-Public Use
  Company Number: PHHY2012BE044464

PATIENT
  Sex: Male

DRUGS (2)
  1. SANDOSTATIN LAR [Suspect]
     Dosage: 20 MG, EVERY 2 WEEKS
     Route: 030
  2. SANDOSTATIN LAR [Suspect]
     Indication: PANCREATITIS CHRONIC
     Dosage: 20 MG, QMO
     Route: 030

REACTIONS (3)
  - DRUG INEFFECTIVE [None]
  - PANCREATITIS [None]
  - AORTIC VALVE STENOSIS [None]
